FAERS Safety Report 23485096 (Version 5)
Quarter: 2025Q1

REPORT INFORMATION
  Report Type: Spontaneous
  Country: US (occurrence: US)
  Receive Date: 20240206
  Receipt Date: 20250303
  Transmission Date: 20250409
  Serious: Yes (Hospitalization, Other)
  Sender: SANOFI AVENTIS
  Company Number: US-SA-SAC20240202000061

PATIENT
  Age: 77 Year
  Sex: Female
  Weight: 82.55 kg

DRUGS (61)
  1. DUPIXENT [Suspect]
     Active Substance: DUPILUMAB
     Indication: Neurodermatitis
     Dosage: 300 MG, QOW
     Route: 058
     Dates: start: 20231106
  2. POTASSIUM CHLORIDE [Concomitant]
     Active Substance: POTASSIUM CHLORIDE
  3. ELIQUIS [Concomitant]
     Active Substance: APIXABAN
  4. CETIRIZINE [Concomitant]
     Active Substance: CETIRIZINE HYDROCHLORIDE
  5. LEVOTHYROXINE [Concomitant]
     Active Substance: LEVOTHYROXINE
  6. TRAMADOL [Concomitant]
     Active Substance: TRAMADOL
  7. PREGABALIN [Concomitant]
     Active Substance: PREGABALIN
  8. HYDROCORTISONE [Concomitant]
     Active Substance: HYDROCORTISONE
  9. TRELEGY ELLIPTA [Concomitant]
     Active Substance: FLUTICASONE FUROATE\UMECLIDINIUM BROMIDE\VILANTEROL TRIFENATATE
  10. ALBUTEROL\IPRATROPIUM [Concomitant]
     Active Substance: ALBUTEROL\IPRATROPIUM
  11. MONTELUKAST [Concomitant]
     Active Substance: MONTELUKAST
  12. PANTOPRAZOLE [Concomitant]
     Active Substance: PANTOPRAZOLE
  13. TRAZODONE [Concomitant]
     Active Substance: TRAZODONE HYDROCHLORIDE
  14. ATORVASTATIN [Concomitant]
     Active Substance: ATORVASTATIN
  15. HYDROXYZINE [Concomitant]
     Active Substance: HYDROXYZINE HYDROCHLORIDE
  16. GABAPENTIN [Concomitant]
     Active Substance: GABAPENTIN
  17. AZELASTINE HYDROCHLORIDE [Concomitant]
     Active Substance: AZELASTINE HYDROCHLORIDE
  18. RETINOL [Concomitant]
     Active Substance: RETINOL
  19. PYRIDOXINE [Concomitant]
     Active Substance: PYRIDOXINE
  20. PANTOPRAZOLE SODIUM [Concomitant]
     Active Substance: PANTOPRAZOLE SODIUM
  21. CALCIUM [Concomitant]
     Active Substance: CALCIUM
  22. VITAMIN D3 [Concomitant]
     Active Substance: CHOLECALCIFEROL
  23. BIOTIN [Concomitant]
     Active Substance: BIOTIN
  24. STOOL SOFTENER (DOCUSATE) [Concomitant]
     Active Substance: DOCUSATE
  25. CLOBETASOL PROPIONATE [Concomitant]
     Active Substance: CLOBETASOL PROPIONATE
  26. Beet root [Concomitant]
  27. VITAMIN E [Concomitant]
     Active Substance: .ALPHA.-TOCOPHEROL
  28. ASCORBIC ACID [Concomitant]
     Active Substance: ASCORBIC ACID
  29. ONDANSETRON HYDROCHLORIDE [Concomitant]
     Active Substance: ONDANSETRON HYDROCHLORIDE
  30. CYANOCOBALAMIN\DEXPANTHENOL\NIACINAMIDE\PYRIDOXINE HYDROCHLORIDE\RIBOF [Concomitant]
     Active Substance: CYANOCOBALAMIN\DEXPANTHENOL\NIACINAMIDE\PYRIDOXINE HYDROCHLORIDE\RIBOFLAVIN 5^-PHOSPHATE SODIUM\THIA
  31. MINERALS\VITAMINS [Concomitant]
     Active Substance: MINERALS\VITAMINS
  32. VITAMIN B12 [Concomitant]
     Active Substance: CYANOCOBALAMIN
  33. FLONASE ALLERGY RELIEF [Concomitant]
     Active Substance: FLUTICASONE PROPIONATE
  34. REFRESH RELIEVA [Concomitant]
     Active Substance: CARBOXYMETHYLCELLULOSE SODIUM\GLYCERIN
  35. VITAMINS NOS [Concomitant]
     Active Substance: VITAMINS
  36. TRAMADOL HCL [Concomitant]
     Active Substance: TRAMADOL HYDROCHLORIDE
  37. LEVOTHYROXINE SODIUM [Concomitant]
     Active Substance: LEVOTHYROXINE SODIUM
  38. TRAZODONE HCL [Concomitant]
     Active Substance: TRAZODONE HYDROCHLORIDE
  39. MONTELUKAST SODIUM [Concomitant]
     Active Substance: MONTELUKAST SODIUM
  40. TYLENOL [Concomitant]
     Active Substance: ACETAMINOPHEN
  41. CEFUROXIME [Concomitant]
     Active Substance: CEFUROXIME
  42. DILTIAZEM [Concomitant]
     Active Substance: DILTIAZEM
  43. BUSPIRONE HCL [Concomitant]
     Active Substance: BUSPIRONE HYDROCHLORIDE
  44. B Complex with vitamin c [Concomitant]
  45. VITAMIN E [Concomitant]
     Active Substance: .ALPHA.-TOCOPHEROL
  46. MAGNESIUM [Concomitant]
     Active Substance: MAGNESIUM
  47. VENTOLIN HFA [Concomitant]
     Active Substance: ALBUTEROL SULFATE
  48. LYRICA [Concomitant]
     Active Substance: PREGABALIN
  49. VITAMIN C [Concomitant]
     Active Substance: ASCORBIC ACID
  50. MELATONIN [Concomitant]
     Active Substance: MELATONIN
  51. CALCIUM CARBONATE [Concomitant]
     Active Substance: CALCIUM CARBONATE
  52. ALBUTEROL SULFATE [Concomitant]
     Active Substance: ALBUTEROL SULFATE
  53. BENADRYL [Concomitant]
     Active Substance: DIPHENHYDRAMINE HYDROCHLORIDE
  54. ZINC [Concomitant]
     Active Substance: ZINC
  55. PROLIA [Concomitant]
     Active Substance: DENOSUMAB
  56. PANTOPRAZOLE SODIUM [Concomitant]
     Active Substance: PANTOPRAZOLE SODIUM
  57. MELATONIN [Concomitant]
     Active Substance: MELATONIN
  58. LIPITOR [Concomitant]
     Active Substance: ATORVASTATIN CALCIUM
  59. FLUDROCORTISONE ACETATE [Concomitant]
     Active Substance: FLUDROCORTISONE ACETATE
  60. ZYRTEC [Concomitant]
     Active Substance: CETIRIZINE HYDROCHLORIDE
  61. ELIQUIS [Concomitant]
     Active Substance: APIXABAN

REACTIONS (9)
  - Blood glucose decreased [Unknown]
  - Transient ischaemic attack [Unknown]
  - Skin cancer [Unknown]
  - Gastric bypass [Unknown]
  - Scar [Unknown]
  - Fall [Unknown]
  - Cardiac disorder [Unknown]
  - Peripheral swelling [Unknown]
  - Insomnia [Unknown]

NARRATIVE: CASE EVENT DATE: 20240130
